FAERS Safety Report 5942806-3 (Version None)
Quarter: 2008Q4

REPORT INFORMATION
  Report Type: 
  Country: None (occurrence: None)
  Receive Date: 20081103
  Receipt Date: 20081022
  Transmission Date: 20090506
  Serious: Yes (Hospitalization)
  Sender: FDA-Public Use
  Company Number: GXKR2008US10101

PATIENT
  Age: 61 Year
  Sex: Male

DRUGS (7)
  1. THIORIDAZINE HCL [Suspect]
  2. ENALAPRIL MALEATE [Concomitant]
  3. HYDROCHLOROTHIAZIDE [Concomitant]
  4. LEVOTHYROXINE SODIUM [Concomitant]
  5. RISPERDAL [Concomitant]
  6. AMIODARONE HCL [Concomitant]
  7. WARFARIN SODIUM [Concomitant]

REACTIONS (6)
  - ABDOMINAL TENDERNESS [None]
  - CHOLESTASIS [None]
  - CHROMATURIA [None]
  - HEPATOMEGALY [None]
  - OCULAR ICTERUS [None]
  - VANISHING BILE DUCT SYNDROME [None]
